FAERS Safety Report 7965727-3 (Version None)
Quarter: 2011Q4

REPORT INFORMATION
  Report Type: 
  Country: None (occurrence: None)
  Receive Date: 20111208
  Receipt Date: 20111205
  Transmission Date: 20120403
  Serious: Yes (Death, Hospitalization, Other)
  Sender: FDA-Public Use
  Company Number: US-PFIZER INC-2011153163

PATIENT
  Sex: Female

DRUGS (2)
  1. CHANTIX [Suspect]
     Indication: SMOKING CESSATION THERAPY
     Dosage: 1 MG, ONE TABLET, 2X/DAY
     Route: 048
     Dates: start: 20090901, end: 20091127
  2. TRAMADOL [Concomitant]
     Indication: NECK PAIN
     Dosage: UNK
     Dates: start: 19990101, end: 20091101

REACTIONS (7)
  - HEAD INJURY [None]
  - CEREBROVASCULAR ACCIDENT [None]
  - DIZZINESS [None]
  - FALL [None]
  - SUICIDAL IDEATION [None]
  - CONVULSION [None]
  - DEPRESSION [None]
